FAERS Safety Report 8986473 (Version 3)
Quarter: 2013Q1

REPORT INFORMATION
  Report Type: Spontaneous
  Country: DE (occurrence: DE)
  Receive Date: 20121227
  Receipt Date: 20130204
  Transmission Date: 20140127
  Serious: Yes (Other)
  Sender: FDA-Public Use
  Company Number: DE-AMGEN-DEUSP2012082733

PATIENT
  Sex: Male
  Weight: 79 kg

DRUGS (4)
  1. XGEVA [Suspect]
     Indication: OSTEOPOROSIS
     Dosage: 120 MG, Q4WK
     Route: 058
     Dates: start: 20120620
  2. XGEVA [Suspect]
     Indication: BONE PAIN
  3. AVASTIN [Suspect]
     Indication: GLIOBLASTOMA
     Dosage: 800 MG, Q2WK
     Route: 042
  4. CAMPTO [Concomitant]
     Indication: GLIOBLASTOMA
     Dosage: 240 MG, Q2WK
     Route: 042

REACTIONS (2)
  - Haemolysis [Recovered/Resolved]
  - Potentiating drug interaction [None]
